FAERS Safety Report 18337647 (Version 4)
Quarter: 2023Q2

REPORT INFORMATION
  Report Type: Spontaneous
  Country: RU (occurrence: None)
  Receive Date: 20201002
  Receipt Date: 20230418
  Transmission Date: 20230722
  Serious: Yes (Death, Other)
  Sender: FDA-Public Use
  Company Number: RU-ROCHE-2688110

PATIENT
  Age: 40 Year
  Sex: Female
  Weight: 43 kg

DRUGS (4)
  1. BENDAMUSTINE [Suspect]
     Active Substance: BENDAMUSTINE
     Indication: Marginal zone lymphoma recurrent
     Dosage: GB REGIMEN
     Route: 065
     Dates: start: 2018, end: 2019
  2. RITUXIMAB [Suspect]
     Active Substance: RITUXIMAB
     Indication: Marginal zone lymphoma recurrent
     Dosage: 4 CYCLES
     Route: 065
     Dates: start: 2008
  3. RITUXIMAB [Suspect]
     Active Substance: RITUXIMAB
     Dosage: 8RCVP+R REGIMEN
     Route: 065
     Dates: start: 2013, end: 2016
  4. GAZYVA [Suspect]
     Active Substance: OBINUTUZUMAB
     Indication: Marginal zone lymphoma recurrent
     Dosage: GB REGIMEN
     Route: 042
     Dates: start: 2018, end: 2019

REACTIONS (2)
  - Marginal zone lymphoma recurrent [Unknown]
  - Pneumonia [Fatal]
